FAERS Safety Report 23271482 (Version 1)
Quarter: 2023Q4

REPORT INFORMATION
  Report Type: Report from Study
  Country: IN (occurrence: None)
  Receive Date: 20231207
  Receipt Date: 20231207
  Transmission Date: 20240109
  Serious: Yes (Other)
  Sender: FDA-Public Use
  Company Number: 2023A276246

PATIENT
  Age: 52 Year
  Sex: Male

DRUGS (1)
  1. LYNPARZA [Suspect]
     Active Substance: OLAPARIB
     Indication: Adenocarcinoma pancreas
     Dosage: 150.0MG ONCE/SINGLE ADMINISTRATION
     Route: 048

REACTIONS (3)
  - Ascites [Unknown]
  - Malaise [Unknown]
  - Pyrexia [Unknown]
